FAERS Safety Report 18538444 (Version 2)
Quarter: 2020Q4

REPORT INFORMATION
  Report Type: Spontaneous
  Country: JP (occurrence: JP)
  Receive Date: 20201124
  Receipt Date: 20201201
  Transmission Date: 20210114
  Serious: Yes (Other)
  Sender: FDA-Public Use
  Company Number: NVSJ2020JP012391

PATIENT
  Age: 82 Year
  Sex: Female

DRUGS (3)
  1. BEOVU [Suspect]
     Active Substance: BROLUCIZUMAB-DBLL
     Indication: POLYPOIDAL CHOROIDAL VASCULOPATHY
     Dosage: 6 MG
     Route: 031
     Dates: start: 20200929, end: 20200929
  2. EYLEA [Suspect]
     Active Substance: AFLIBERCEPT
     Indication: POLYPOIDAL CHOROIDAL VASCULOPATHY
     Dosage: UNKNOWN (21 TIMES)
     Route: 031
     Dates: start: 2014, end: 201807
  3. EYLEA [Suspect]
     Active Substance: AFLIBERCEPT
     Dosage: UNKNOWN (12 TIMES)
     Route: 031
     Dates: start: 201809, end: 202008

REACTIONS (7)
  - Eye inflammation [Unknown]
  - Product use in unapproved indication [Unknown]
  - Retinal perivascular sheathing [Unknown]
  - Retinal vasculitis [Unknown]
  - Blindness transient [Recovered/Resolved]
  - Keratic precipitates [Recovered/Resolved]
  - Vitreous opacities [Recovered/Resolved]

NARRATIVE: CASE EVENT DATE: 202009
